FAERS Safety Report 9143187 (Version 1)
Quarter: 2013Q1

REPORT INFORMATION
  Report Type: Spontaneous
  Country: US (occurrence: US)
  Receive Date: 20130306
  Receipt Date: 20130306
  Transmission Date: 20140127
  Serious: No
  Sender: FDA-Public Use
  Company Number: US-ENDO PHARMACEUTICALS INC.-OPER20110048

PATIENT
  Age: 64 Year
  Sex: Male

DRUGS (1)
  1. OPANA ER [Suspect]
     Indication: NERVOUS SYSTEM DISORDER
     Route: 048

REACTIONS (7)
  - Lacrimation increased [Recovered/Resolved]
  - Nasal congestion [Recovered/Resolved]
  - Lethargy [Recovered/Resolved]
  - Delusion [Recovered/Resolved]
  - Headache [Recovered/Resolved]
  - Dyspnoea [Recovered/Resolved]
  - Drug ineffective [Recovered/Resolved]
